FAERS Safety Report 11777732 (Version 1)
Quarter: 2015Q4

REPORT INFORMATION
  Report Type: Spontaneous
  Country: US (occurrence: US)
  Receive Date: 20151125
  Receipt Date: 20151125
  Transmission Date: 20160304
  Serious: No
  Sender: FDA-Public Use
  Company Number: CHPA2015US000947

PATIENT
  Age: 30 Year
  Sex: Female

DRUGS (3)
  1. IMITREX ^CERENEX^ [Concomitant]
     Indication: PRODUCT USED FOR UNKNOWN INDICATION
  2. EXCEDRIN MIGRAINE [Suspect]
     Active Substance: ACETAMINOPHEN\ASPIRIN\CAFFEINE
     Indication: HEADACHE
     Dosage: 2 DF, PRN
     Route: 048
  3. POTASSIUM CHLORIDE. [Suspect]
     Active Substance: POTASSIUM CHLORIDE
     Indication: PRODUCT USED FOR UNKNOWN INDICATION
     Dosage: UNK
     Route: 048

REACTIONS (3)
  - Nausea [Recovering/Resolving]
  - Accidental exposure to product [Unknown]
  - Off label use [Unknown]
